FAERS Safety Report 6658801-5 (Version None)
Quarter: 2010Q1

REPORT INFORMATION
  Report Type: 
  Country: None (occurrence: None)
  Receive Date: 20100330
  Receipt Date: 20100324
  Transmission Date: 20100710
  Serious: Yes (Hospitalization)
  Sender: FDA-Public Use
  Company Number: GXKR2010PL03467

PATIENT
  Age: 52 Year
  Sex: Female

DRUGS (2)
  1. AMLODIPINE [Suspect]
     Route: 065
  2. SPIRONOLACTONE (NGX) [Suspect]
     Route: 065

REACTIONS (10)
  - ACUTE GENERALISED EXANTHEMATOUS PUSTULOSIS [None]
  - ARTHRALGIA [None]
  - ASTHENIA [None]
  - ERYTHEMA MULTIFORME [None]
  - LEUKOCYTOSIS [None]
  - NEUTROPHILIA [None]
  - OEDEMA PERIPHERAL [None]
  - PYREXIA [None]
  - RASH [None]
  - THROMBOCYTOPENIA [None]
